FAERS Safety Report 7648064-6 (Version None)
Quarter: 2011Q3

REPORT INFORMATION
  Report Type: 
  Country: None (occurrence: None)
  Receive Date: 20110801
  Receipt Date: 20110726
  Transmission Date: 20111222
  Serious: Yes (Life-Threatening)
  Sender: FDA-Public Use
  Company Number: FR-ASTRAZENECA-2011SE44699

PATIENT
  Age: 19197 Day
  Sex: Female

DRUGS (4)
  1. DIPRIVAN [Suspect]
     Dosage: 100 MG AND THEN 200 MG
     Route: 042
     Dates: start: 20110616, end: 20110616
  2. NIMBEX [Suspect]
     Dosage: 10 MG
     Route: 042
     Dates: start: 20110616, end: 20110616
  3. CELOCURINE [Suspect]
     Dosage: 100 MG
     Route: 042
     Dates: start: 20110616, end: 20110616
  4. SUFENTANIL CITRATE [Suspect]
     Dosage: 100 UG
     Route: 042
     Dates: start: 20110616, end: 20110616

REACTIONS (3)
  - HYPOCAPNIA [None]
  - ANAPHYLACTIC SHOCK [None]
  - BRONCHOSPASM [None]
